FAERS Safety Report 7409922-0 (Version None)
Quarter: 2011Q2

REPORT INFORMATION
  Report Type: 
  Country: None (occurrence: None)
  Receive Date: 20110412
  Receipt Date: 20110330
  Transmission Date: 20111010
  Serious: Yes (Other)
  Sender: FDA-Public Use
  Company Number: PHHY2011US25495

PATIENT
  Age: 31 Year
  Sex: Female

DRUGS (4)
  1. LEXAPRO [Concomitant]
     Dosage: 5 MG, UNK
  2. TRAZODONE [Concomitant]
     Dosage: 50 MG, UNK
  3. GILENYA [Suspect]
     Indication: RELAPSING-REMITTING MULTIPLE SCLEROSIS
     Dosage: UNK
     Route: 048
     Dates: start: 20101227, end: 20110323
  4. BIRTH CONTROL PILLS [Concomitant]
     Dosage: UNK

REACTIONS (6)
  - BRAIN HERNIATION [None]
  - DEHYDRATION [None]
  - UNRESPONSIVE TO STIMULI [None]
  - INFLUENZA [None]
  - CENTRAL NERVOUS SYSTEM LESION [None]
  - COGNITIVE DISORDER [None]
